FAERS Safety Report 16380301 (Version 6)
Quarter: 2019Q3

REPORT INFORMATION
  Report Type: Spontaneous
  Country: DE (occurrence: DE)
  Receive Date: 20190601
  Receipt Date: 20190921
  Transmission Date: 20191004
  Serious: Yes (Hospitalization, Other)
  Sender: FDA-Public Use
  Company Number: DE-AUROBINDO-AUR-APL-2019-030974

PATIENT
  Sex: Female
  Weight: 83 kg

DRUGS (5)
  1. KISQALI [Suspect]
     Active Substance: RIBOCICLIB
     Indication: BREAST CANCER METASTATIC
     Dosage: 600 MG, QD (21 DAYS INTAKE , 7 DAYS PAUSE)
     Route: 048
     Dates: start: 20190412, end: 20190509
  2. KISQALI [Suspect]
     Active Substance: RIBOCICLIB
     Dosage: 400 MG, QD  (21 DAYS INTAKE , 7 DAYS PAUSE)
     Route: 048
     Dates: start: 20190516
  3. GRANOCYTE [Concomitant]
     Active Substance: LENOGRASTIM
     Indication: LEUKOPENIA
     Dosage: 34 INTERNATIONAL UNIT, UNK
     Route: 065
     Dates: start: 20190118, end: 20190227
  4. LETROZOLE. [Suspect]
     Active Substance: LETROZOLE
     Indication: BREAST CANCER METASTATIC
     Dosage: 2.5 MILLIGRAM, ONCE A DAY, 2.5 MG, QD
     Route: 048
     Dates: start: 20190410
  5. LETROZOLE. [Suspect]
     Active Substance: LETROZOLE
     Dosage: 2.5 MILLIGRAM, ONCE A DAY, 2.5 MG, QD
     Route: 048
     Dates: start: 20190412

REACTIONS (7)
  - Oedema [Not Recovered/Not Resolved]
  - Neutropenia [Recovering/Resolving]
  - Concomitant disease aggravated [Recovered/Resolved]
  - Radiation pneumonitis [Recovered/Resolved]
  - Alopecia [Not Recovered/Not Resolved]
  - Cough [Recovered/Resolved]
  - Leukopenia [Recovered/Resolved]

NARRATIVE: CASE EVENT DATE: 20190501
